FAERS Safety Report 20631308 (Version 7)
Quarter: 2023Q4

REPORT INFORMATION
  Report Type: Other
  Country: CA (occurrence: CA)
  Receive Date: 20220324
  Receipt Date: 20231122
  Transmission Date: 20240110
  Serious: Yes (Other)
  Sender: FDA-Public Use
  Company Number: CA-GLENMARK PHARMACEUTICALS-2022GMK071264

PATIENT

DRUGS (65)
  1. TOPIRAMATE [Suspect]
     Active Substance: TOPIRAMATE
     Indication: Migraine
     Dosage: UNK
     Route: 065
  2. TOPIRAMATE [Suspect]
     Active Substance: TOPIRAMATE
     Indication: Migraine
     Dosage: UNK
     Route: 065
  3. TOPIRAMATE [Suspect]
     Active Substance: TOPIRAMATE
     Dosage: UNK
     Route: 065
  4. AIMOVIG [Suspect]
     Active Substance: ERENUMAB-AOOE
     Indication: Migraine
     Dosage: 140 MILLIGRAM, 1 EVERY 1 MONTH
     Route: 058
  5. AIMOVIG [Suspect]
     Active Substance: ERENUMAB-AOOE
     Dosage: 140 MILLIGRAM, 1 EVERY 1 MONTH
     Route: 058
  6. AIMOVIG [Suspect]
     Active Substance: ERENUMAB-AOOE
     Dosage: 140 MILLIGRAM, 1 EVERY 1 MONTH
     Route: 058
  7. AIMOVIG [Suspect]
     Active Substance: ERENUMAB-AOOE
     Dosage: 140 MILLIGRAM, 1 EVERY 1 MONTH
     Route: 058
  8. AIMOVIG [Suspect]
     Active Substance: ERENUMAB-AOOE
     Dosage: 140 MILLIGRAM, 1 EVERY 1 MONTH
     Route: 058
  9. AIMOVIG [Suspect]
     Active Substance: ERENUMAB-AOOE
     Indication: Migraine
     Dosage: 140 MILLIGRAM, 1 EVERY 1 MONTH
     Route: 058
  10. AIMOVIG [Suspect]
     Active Substance: ERENUMAB-AOOE
     Dosage: 140 MILLIGRAM, 1 EVERY 1 MONTH
     Route: 065
  11. AIMOVIG [Suspect]
     Active Substance: ERENUMAB-AOOE
     Indication: Migraine
     Dosage: 140 MILLIGRAM, 1 EVERY 1 MONTH
     Route: 065
  12. AIMOVIG [Suspect]
     Active Substance: ERENUMAB-AOOE
     Dosage: 140 MILLIGRAM, 1 EVERY 1 MONTH
     Route: 065
  13. CANDESARTAN [Suspect]
     Active Substance: CANDESARTAN
     Indication: Migraine
     Dosage: 8 MILLIGRAM
     Route: 048
  14. CANDESARTAN [Suspect]
     Active Substance: CANDESARTAN
     Indication: Blood pressure abnormal
     Dosage: 8 MILLIGRAM
     Route: 048
  15. CANDESARTAN [Suspect]
     Active Substance: CANDESARTAN
     Dosage: 16 MILLIGRAM
     Route: 048
  16. CANDESARTAN [Suspect]
     Active Substance: CANDESARTAN
     Dosage: 16 MILLIGRAM
     Route: 048
  17. CANDESARTAN [Suspect]
     Active Substance: CANDESARTAN
     Dosage: 8 MILLIGRAM
     Route: 048
  18. CANDESARTAN [Suspect]
     Active Substance: CANDESARTAN
     Dosage: 8 MILLIGRAM
     Route: 048
  19. CANDESARTAN [Suspect]
     Active Substance: CANDESARTAN
     Dosage: 8 MILLIGRAM
     Route: 048
  20. CANDESARTAN [Suspect]
     Active Substance: CANDESARTAN
     Dosage: 8 MILLIGRAM
     Route: 048
  21. CANDESARTAN [Suspect]
     Active Substance: CANDESARTAN
     Dosage: 16 MILLIGRAM
     Route: 048
  22. CANDESARTAN [Suspect]
     Active Substance: CANDESARTAN
     Dosage: 16 MILLIGRAM
     Route: 048
  23. CANDESARTAN [Suspect]
     Active Substance: CANDESARTAN
     Dosage: 16 MILLIGRAM
     Route: 048
  24. CANDESARTAN [Suspect]
     Active Substance: CANDESARTAN
     Dosage: 16 MILLIGRAM
     Route: 048
  25. CANDESARTAN [Suspect]
     Active Substance: CANDESARTAN
     Dosage: 16 MILLIGRAM
     Route: 048
  26. CANDESARTAN [Suspect]
     Active Substance: CANDESARTAN
     Dosage: 16 MILLIGRAM
     Route: 048
  27. CANDESARTAN [Suspect]
     Active Substance: CANDESARTAN
     Dosage: 8 MILLIGRAM
     Route: 048
  28. CANDESARTAN [Suspect]
     Active Substance: CANDESARTAN
     Dosage: 8 MILLIGRAM
     Route: 048
  29. CANDESARTAN CILEXETIL [Suspect]
     Active Substance: CANDESARTAN CILEXETIL
     Indication: Migraine
     Dosage: 8 MILLIGRAM
     Route: 048
  30. CANDESARTAN CILEXETIL [Suspect]
     Active Substance: CANDESARTAN CILEXETIL
     Indication: Blood pressure abnormal
     Dosage: 16 MILLIGRAM
     Route: 048
  31. CANDESARTAN CILEXETIL [Suspect]
     Active Substance: CANDESARTAN CILEXETIL
     Dosage: 16 MILLIGRAM
     Route: 048
  32. CANDESARTAN CILEXETIL [Suspect]
     Active Substance: CANDESARTAN CILEXETIL
     Dosage: 8 MILLIGRAM
     Route: 065
  33. CANDESARTAN CILEXETIL [Suspect]
     Active Substance: CANDESARTAN CILEXETIL
     Dosage: 8 MILLIGRAM 1 EVERY 1 DAYS
     Route: 065
  34. CANDESARTAN CILEXETIL [Suspect]
     Active Substance: CANDESARTAN CILEXETIL
     Indication: Migraine
     Dosage: 8 MILLIGRAM
     Route: 048
  35. CANDESARTAN CILEXETIL [Suspect]
     Active Substance: CANDESARTAN CILEXETIL
     Indication: Blood pressure abnormal
     Dosage: 16 MILLIGRAM
     Route: 048
  36. CANDESARTAN CILEXETIL [Suspect]
     Active Substance: CANDESARTAN CILEXETIL
     Dosage: 8 MILLIGRAM
     Route: 048
  37. CANDESARTAN CILEXETIL [Suspect]
     Active Substance: CANDESARTAN CILEXETIL
     Dosage: 16 MILLIGRAM
     Route: 048
  38. ERENUMAB-AOOE [Suspect]
     Active Substance: ERENUMAB-AOOE
     Indication: Migraine
     Dosage: 140 MILLIGRAM, 1 EVERY 1 MONTH
     Route: 058
  39. PANTOPRAZOLE [Suspect]
     Active Substance: PANTOPRAZOLE
     Indication: Migraine
     Dosage: 40 MILLIGRAM, EVERY 12 HOUR
     Route: 065
  40. FLUOXETINE HYDROCHLORIDE [Suspect]
     Active Substance: FLUOXETINE HYDROCHLORIDE
     Indication: Migraine
     Dosage: 20 MILLIGRAM
     Route: 065
  41. PANTOPRAZOLE SODIUM [Suspect]
     Active Substance: PANTOPRAZOLE SODIUM
     Indication: Migraine
     Dosage: 40 MILLIGRAM 2 EVERY 1 DAYS
     Route: 065
  42. PANTOPRAZOLE SODIUM [Suspect]
     Active Substance: PANTOPRAZOLE SODIUM
     Dosage: 40 MILLIGRAM 2 EVERY 1 DAYS
     Route: 065
  43. PANTOPRAZOLE SODIUM ANHYDROUS [Suspect]
     Active Substance: PANTOPRAZOLE SODIUM ANHYDROUS
     Indication: Migraine
     Dosage: 40 MILLIGRAM, BID
     Route: 065
  44. PANTOPRAZOLE SODIUM ANHYDROUS [Suspect]
     Active Substance: PANTOPRAZOLE SODIUM ANHYDROUS
     Dosage: 40 MILLIGRAM, 2 EVERY 1 DAYS
     Route: 065
  45. CANDESARTAN [Suspect]
     Active Substance: CANDESARTAN
     Indication: Migraine
     Dosage: 8 MILLIGRAM
     Route: 048
  46. CANDESARTAN [Suspect]
     Active Substance: CANDESARTAN
     Indication: Blood pressure abnormal
     Dosage: 8 MILLIGRAM
     Route: 048
  47. CANDESARTAN [Suspect]
     Active Substance: CANDESARTAN
     Dosage: 8 MILLIGRAM
     Route: 048
  48. CANDESARTAN [Suspect]
     Active Substance: CANDESARTAN
     Dosage: 16 MILLIGRAM
     Route: 048
  49. CANDESARTAN [Suspect]
     Active Substance: CANDESARTAN
     Dosage: 16 MILLIGRAM
     Route: 048
  50. CANDESARTAN [Suspect]
     Active Substance: CANDESARTAN
     Dosage: 8 MILLIGRAM
     Route: 048
  51. FERROUS FUMARATE [Concomitant]
     Active Substance: FERROUS FUMARATE
     Indication: Product used for unknown indication
     Dosage: 300 MILLIGRAM
     Route: 065
  52. FERROUS FUMARATE [Concomitant]
     Active Substance: FERROUS FUMARATE
     Dosage: 300 MILLIGRAM
     Route: 065
  53. MODAFINIL [Concomitant]
     Active Substance: MODAFINIL
     Indication: Product used for unknown indication
     Dosage: 100 MILLIGRAM, 2 EVERY 1 DAYS
     Route: 065
  54. MODAFINIL [Concomitant]
     Active Substance: MODAFINIL
     Dosage: 100 MILLIGRAM, 2 EVERY 1 DAYS
     Route: 065
  55. NAPROXEN [Concomitant]
     Active Substance: NAPROXEN
     Indication: Product used for unknown indication
     Dosage: 500 MILLIGRAM
     Route: 065
  56. NAPROXEN [Concomitant]
     Active Substance: NAPROXEN
     Dosage: 500 MILLIGRAM
     Route: 065
  57. OSTO-D2 [Concomitant]
     Indication: Product used for unknown indication
     Dosage: 1 DOSAGE FORM, QW
     Route: 065
  58. OSTO-D2 [Concomitant]
     Dosage: 50000.0 INTERNATIONAL UNIT, 1 EVERY 1 WEEK
     Route: 065
  59. OSTO-D2 [Concomitant]
     Dosage: UNK, 1 EVERY 1 WEEK
     Route: 065
  60. OSTO-D2 [Concomitant]
     Dosage: UNK, 1 EVERY 1 WEEK
     Route: 065
  61. OSTO-D2 [Concomitant]
     Dosage: UNK, 1 EVERY 1 DAYS
     Route: 065
  62. IRON [Concomitant]
     Active Substance: IRON
     Indication: Product used for unknown indication
     Dosage: 300 MILLIGRAM
     Route: 065
  63. ROSUVASTATIN CALCIUM [Concomitant]
     Active Substance: ROSUVASTATIN CALCIUM
     Indication: Product used for unknown indication
     Dosage: 10 MILLIGRAM
     Route: 065
  64. ROSUVASTATIN CALCIUM [Concomitant]
     Active Substance: ROSUVASTATIN CALCIUM
     Dosage: UNK
     Route: 065
  65. ERENUMAB-AOOE [Concomitant]
     Active Substance: ERENUMAB-AOOE
     Indication: Product used for unknown indication
     Dosage: UNK
     Route: 065

REACTIONS (22)
  - Blood pressure measurement [Recovering/Resolving]
  - Blood pressure fluctuation [Recovering/Resolving]
  - Drug intolerance [Recovering/Resolving]
  - Off label use [Unknown]
  - Heart rate [Recovering/Resolving]
  - Concussion [Recovering/Resolving]
  - Product use in unapproved indication [Unknown]
  - Fall [Recovering/Resolving]
  - Dysstasia [Recovering/Resolving]
  - Heart rate abnormal [Recovering/Resolving]
  - Hypertension [Recovering/Resolving]
  - Pain of skin [Recovering/Resolving]
  - Headache [Recovering/Resolving]
  - Eye pain [Recovering/Resolving]
  - Migraine [Recovering/Resolving]
  - Nausea [Recovering/Resolving]
  - Hypoaesthesia oral [Recovering/Resolving]
  - Photophobia [Recovering/Resolving]
  - Swelling face [Recovering/Resolving]
  - Therapeutic product effect decreased [Unknown]
  - Drug ineffective [Unknown]
  - Drug ineffective for unapproved indication [Unknown]
